FAERS Safety Report 7739960-X (Version None)
Quarter: 2011Q3

REPORT INFORMATION
  Report Type: 
  Country: None (occurrence: None)
  Receive Date: 20110909
  Receipt Date: 20110831
  Transmission Date: 20111222
  Serious: Yes (Hospitalization, Disabling)
  Sender: FDA-Public Use
  Company Number: DE-JNJFOC-20110812328

PATIENT
  Sex: Male
  Weight: 77 kg

DRUGS (5)
  1. TARCEVA [Suspect]
     Indication: ADENOCARCINOMA PANCREAS
     Route: 048
     Dates: end: 20110219
  2. GEMCITABINE [Suspect]
     Indication: ADENOCARCINOMA PANCREAS
     Dosage: 11-JAN-201, 18-JAN-2011, 25-JAN-2011, 08-FEB-2011, 15-FEB-2011
     Route: 042
     Dates: start: 20110111, end: 20110215
  3. REMICADE [Suspect]
     Indication: ANKYLOSING SPONDYLITIS
     Route: 042
     Dates: start: 20110106
  4. TARCEVA [Suspect]
     Route: 048
  5. TARCEVA [Suspect]
     Route: 048
     Dates: start: 20110111

REACTIONS (3)
  - RENAL FAILURE ACUTE [None]
  - SEPSIS [None]
  - CHOLANGITIS SUPPURATIVE [None]
